FAERS Safety Report 9596168 (Version 2)
Quarter: 2013Q4

REPORT INFORMATION
  Report Type: Spontaneous
  Country: US (occurrence: US)
  Receive Date: 20131004
  Receipt Date: 20131004
  Transmission Date: 20140711
  Serious: Yes (Other)
  Sender: FDA-Public Use
  Company Number: US-B.I. PHARMACEUTICALS,INC./RIDGEFIELD-2013-BI-12222BP

PATIENT
  Age: 82 Year
  Sex: Female
  Weight: 68.04 kg

DRUGS (7)
  1. PRADAXA [Suspect]
     Indication: ANTICOAGULANT THERAPY
     Dates: start: 20110207, end: 20110926
  2. ZIAC [Concomitant]
     Dates: start: 1996, end: 2011
  3. PROCARDIA [Concomitant]
     Dates: start: 1996, end: 2011
  4. PREVACID [Concomitant]
     Dates: start: 1996, end: 2011
  5. SYNTHROID [Concomitant]
     Dates: start: 1996, end: 2011
  6. LIPITOR [Concomitant]
     Dates: start: 1996, end: 2011
  7. AZOR [Concomitant]
     Dates: start: 2010, end: 2011

REACTIONS (2)
  - Gastrointestinal haemorrhage [Unknown]
  - Haemorrhagic anaemia [Unknown]
